FAERS Safety Report 6688491-7 (Version None)
Quarter: 2010Q2

REPORT INFORMATION
  Report Type: 
  Country: None (occurrence: None)
  Receive Date: 20100420
  Receipt Date: 20100409
  Transmission Date: 20101027
  Serious: Yes (Death, Hospitalization)
  Sender: FDA-Public Use
  Company Number: US-BAYER-201021712GPV

PATIENT
  Age: 35 Year
  Sex: Male

DRUGS (1)
  1. ASPIRIN [Suspect]
     Indication: DRUG USE FOR UNKNOWN INDICATION
     Dosage: 400 TABLETS
     Route: 048

REACTIONS (9)
  - AGGRESSION [None]
  - AGITATION [None]
  - BLOOD CREATININE INCREASED [None]
  - BODY TEMPERATURE INCREASED [None]
  - CONFUSIONAL STATE [None]
  - HYPERHIDROSIS [None]
  - MENTAL STATUS CHANGES [None]
  - PULMONARY OEDEMA [None]
  - RENAL IMPAIRMENT [None]
